FAERS Safety Report 14060383 (Version 1)
Quarter: 2017Q4

REPORT INFORMATION
  Report Type: Spontaneous
  Country: US (occurrence: US)
  Receive Date: 20171006
  Receipt Date: 20171006
  Transmission Date: 20180321
  Serious: No
  Sender: FDA-Public Use
  Company Number: US-AMGEN-USASP2016149174

PATIENT
  Age: 69 Year
  Sex: Male

DRUGS (2)
  1. 5 FU [Concomitant]
     Active Substance: FLUOROURACIL
     Dosage: UNK
  2. VECTIBIX [Suspect]
     Active Substance: PANITUMUMAB
     Indication: COLORECTAL CANCER METASTATIC
     Dosage: 480 MG, UNK
     Route: 065

REACTIONS (1)
  - Blood magnesium decreased [Not Recovered/Not Resolved]
